FAERS Safety Report 6125344-7 (Version None)
Quarter: 2009Q1

REPORT INFORMATION
  Report Type: 
  Country: None (occurrence: None)
  Receive Date: 20090319
  Receipt Date: 20090319
  Transmission Date: 20090719
  Serious: Yes (Hospitalization)
  Sender: FDA-Public Use
  Company Number: None

PATIENT
  Age: 65 Year
  Sex: Male
  Weight: 74.55 kg

DRUGS (2)
  1. MIDAZOLAM HCL [Suspect]
     Dosage: 1 MG ONCE IV
     Route: 042
     Dates: start: 20080929, end: 20080929
  2. MEPERIDINE HCL [Suspect]
     Dosage: 25 MG ONCE IV
     Route: 042
     Dates: start: 20080929, end: 20080929

REACTIONS (1)
  - HYPOTENSION [None]
